FAERS Safety Report 9834637 (Version 2)
Quarter: 2014Q1

REPORT INFORMATION
  Report Type: Spontaneous
  Country: US (occurrence: US)
  Receive Date: 20140122
  Receipt Date: 20140225
  Transmission Date: 20141002
  Serious: No
  Sender: FDA-Public Use
  Company Number: US-TEVA-457195USA

PATIENT
  Age: 51 Year
  Sex: Female
  Weight: 54.48 kg

DRUGS (6)
  1. COPAXONE [Suspect]
     Indication: MULTIPLE SCLEROSIS
     Dosage: 20 MILLIGRAM DAILY;
  2. LEVOXYL [Concomitant]
     Indication: HYPOTHYROIDISM
     Dosage: 50 MICROGRAM DAILY;
  3. LYRICA [Concomitant]
     Indication: NEURALGIA
     Dosage: 150 MILLIGRAM DAILY;
  4. FLEXERIL [Concomitant]
     Indication: INTERVERTEBRAL DISC PROTRUSION
  5. IBUPROFEN [Concomitant]
     Indication: PAIN
  6. TRAMADOL [Concomitant]
     Indication: PAIN

REACTIONS (3)
  - Lymphadenopathy [Not Recovered/Not Resolved]
  - Injection site erythema [Not Recovered/Not Resolved]
  - Injection site papule [Not Recovered/Not Resolved]
